FAERS Safety Report 5866555 (Version 2)
Quarter: 2020Q3

REPORT INFORMATION
  Report Type: Report from Study
  Country: PL (occurrence: PL)
  Receive Date: 20050825
  Receipt Date: 20060403
  Transmission Date: 20201105
  Serious: Yes (Death, Life-Threatening, Other)
  Sender: FDA-Public Use
  Company Number: PL-JNJFOC-20050804003

PATIENT
  Age: 55 Year
  Sex: Male

DRUGS (14)
  1. RANITIDINE. [Concomitant]
     Active Substance: RANITIDINE
     Route: 042
  2. MANNITOL. [Concomitant]
     Active Substance: MANNITOL
     Dosage: MANNITOL 20%
     Route: 042
  3. FUROSEMIDE. [Concomitant]
     Active Substance: FUROSEMIDE
     Route: 042
  4. FUROSEMIDE. [Concomitant]
     Active Substance: FUROSEMIDE
     Route: 042
  5. CEFUROXIME. [Concomitant]
     Active Substance: CEFUROXIME
     Route: 042
  6. ASCORBIC ACID. [Concomitant]
     Active Substance: ASCORBIC ACID
     Route: 042
  7. DOPAMINE [Concomitant]
     Active Substance: DOPAMINE HYDROCHLORIDE
     Dosage: VIA SYRINGE PUMP.
     Route: 042
  8. REOPRO [Suspect]
     Active Substance: ABCIXIMAB
     Route: 042
  9. ENALAPRIL [Concomitant]
     Active Substance: ENALAPRIL
     Route: 048
  10. THIAMINE. [Concomitant]
     Active Substance: THIAMINE
     Route: 042
  11. CLONAZEPAM. [Concomitant]
     Active Substance: CLONAZEPAM
     Route: 048
  12. MANNITOL. [Concomitant]
     Active Substance: MANNITOL
     Route: 042
  13. ETAMSYLATE [Concomitant]
     Active Substance: ETHAMSYLATE
     Route: 042
  14. REOPRO [Suspect]
     Active Substance: ABCIXIMAB
     Route: 042

REACTIONS (3)
  - Drug interaction [None]
  - Gastrointestinal haemorrhage [Unknown]
  - Haemorrhagic stroke [Fatal]

NARRATIVE: CASE EVENT DATE: 20050814
